FAERS Safety Report 6385471-6 (Version None)
Quarter: 2009Q4

REPORT INFORMATION
  Report Type: 
  Country: None (occurrence: None)
  Receive Date: 20091002
  Receipt Date: 20081016
  Transmission Date: 20100525
  Serious: No
  Sender: FDA-Public Use
  Company Number: US-ASTRAZENECA-2008UW18959

PATIENT
  Age: 59 Year
  Sex: Female
  Weight: 81.6 kg

DRUGS (4)
  1. ARIMIDEX [Suspect]
     Indication: BREAST CANCER
     Route: 048
     Dates: start: 20080901
  2. DEXTROL [Concomitant]
  3. TRIAMITRINE [Concomitant]
  4. VITAMINS [Concomitant]

REACTIONS (2)
  - FALL [None]
  - WRIST FRACTURE [None]
